FAERS Safety Report 7619628-0 (Version None)
Quarter: 2011Q3

REPORT INFORMATION
  Report Type: 
  Country: None (occurrence: None)
  Receive Date: 20110719
  Receipt Date: 20110418
  Transmission Date: 20111222
  Serious: Yes (Other)
  Sender: FDA-Public Use
  Company Number: US-BAYER-2011-034587

PATIENT
  Age: 37 Year
  Sex: Female
  Weight: 56.236 kg

DRUGS (15)
  1. MIRENA [Suspect]
     Indication: CONTRACEPTION
  2. WELLBUTRIN XL [Concomitant]
     Dosage: 300 MG, QD
     Route: 048
  3. PRAVASTATIN SODIUM [Concomitant]
     Dosage: 20 MG, UNK
     Route: 048
  4. LAMISIL [Concomitant]
     Dosage: 250 MG, QD
     Route: 048
  5. ANTI-ASTHMATICS [Concomitant]
     Indication: ASTHMA
     Dosage: 2 PUFF(S), BID
  6. SINGULAIR [Concomitant]
     Dosage: 10 MG, HS
  7. XOPENEX [Concomitant]
     Dosage: 45 ?G, BID
  8. TERAZOL 7 [Concomitant]
     Dosage: UNK
     Route: 067
  9. MIRENA [Suspect]
     Indication: MENORRHAGIA
     Dosage: 20 MCG/24HR, CONT
     Route: 015
     Dates: start: 20100830, end: 20110125
  10. WELLBUTRIN XL [Concomitant]
     Dosage: 3 DF, QD
  11. FLOVENT HFA [Concomitant]
     Dosage: 110 ?G, UNK
  12. FLONASE [Concomitant]
     Dosage: 50 ?G, BID
  13. DIFLUCAN [Concomitant]
     Dosage: 150 MG, ONCE
  14. TYLENOL W/ CODEINE NO. 3 [Concomitant]
     Dosage: 1 DF, PRN
     Route: 048
  15. FISH OIL [Concomitant]

REACTIONS (15)
  - AMNESIA [None]
  - POLYMENORRHOEA [None]
  - MOOD SWINGS [None]
  - ASTHENIA [None]
  - BACK PAIN [None]
  - ABDOMINAL PAIN [None]
  - MENORRHAGIA [None]
  - MEMORY IMPAIRMENT [None]
  - DISTURBANCE IN ATTENTION [None]
  - ANXIETY [None]
  - DEPRESSION [None]
  - ACNE [None]
  - VAGINAL HAEMORRHAGE [None]
  - ALOPECIA [None]
  - FATIGUE [None]
